FAERS Safety Report 17967673 (Version 14)
Quarter: 2025Q4

REPORT INFORMATION
  Report Type: Report from Study
  Country: US (occurrence: US)
  Receive Date: 20200701
  Receipt Date: 20251231
  Transmission Date: 20260117
  Serious: No
  Sender: PFIZER
  Company Number: US-PFIZER INC-2020250963

PATIENT
  Age: 45 Year
  Sex: Female
  Weight: 54.88 kg

DRUGS (3)
  1. PREMPRO [Suspect]
     Active Substance: ESTROGENS, CONJUGATED\MEDROXYPROGESTERONE ACETATE
     Indication: Menopause
     Dosage: UNK, 1X/DAY (0.5 MG /1.5 MG, ONCE A DAY EVERY NIGHT)
  2. PREMPRO [Suspect]
     Active Substance: ESTROGENS, CONJUGATED\MEDROXYPROGESTERONE ACETATE
     Dosage: 0.45 MG/1.5 MG 1XDAY
     Dates: start: 200502
  3. PREMPRO [Suspect]
     Active Substance: ESTROGENS, CONJUGATED\MEDROXYPROGESTERONE ACETATE
     Dosage: UNK

REACTIONS (12)
  - Drug hypersensitivity [Unknown]
  - Fungal infection [Recovered/Resolved]
  - Bacterial infection [Recovered/Resolved]
  - Vaginal infection [Unknown]
  - Ovarian cyst [Not Recovered/Not Resolved]
  - Disease recurrence [Not Recovered/Not Resolved]
  - Bacterial vulvovaginitis [Unknown]
  - Polyp [Unknown]
  - Intentional product misuse [Unknown]
  - Intentional dose omission [Unknown]
  - Back pain [Unknown]
  - Spondylitis [Unknown]
